FAERS Safety Report 24278758 (Version 2)
Quarter: 2024Q3

REPORT INFORMATION
  Report Type: Report from Study
  Country: CN (occurrence: CN)
  Receive Date: 20240903
  Receipt Date: 20240905
  Transmission Date: 20241017
  Serious: Yes (Life-Threatening, Hospitalization, Other)
  Sender: PFIZER
  Company Number: CN-TAKEDA-2023TUS051231

PATIENT
  Age: 70 Year
  Sex: Female
  Weight: 65 kg

DRUGS (33)
  1. ADCETRIS [Suspect]
     Active Substance: BRENTUXIMAB VEDOTIN
     Indication: Diffuse large B-cell lymphoma
     Dosage: 100 MILLIGRAM, Q3WEEKS
     Route: 041
     Dates: start: 20230510
  2. CALCIUM DOBESILATE [Concomitant]
     Active Substance: CALCIUM DOBESILATE
     Indication: Diabetic microangiopathy
     Dosage: 0.5 GRAM, TID
     Route: 048
     Dates: start: 20230501, end: 20230517
  3. LEVEMIR [Concomitant]
     Active Substance: INSULIN DETEMIR
     Indication: Diabetes mellitus
     Dosage: 13 INTERNATIONAL UNIT
     Route: 058
     Dates: start: 2019
  4. REPAGLINIDE [Concomitant]
     Active Substance: REPAGLINIDE
     Indication: Diabetes mellitus
     Dosage: UNK UNK, BID
     Route: 048
     Dates: start: 2019
  5. AMINO ACIDS INJECTION [Concomitant]
     Active Substance: ALANINE\ARGININE\ASPARTIC ACID\GLUTAMIC ACID\GLYCINE\HISTIDINE\ISOLEUCINE\LEUCINE\LYSINE ACETATE\MET
     Indication: Nutritional supplementation
     Dosage: 250 MILLILITER, QD
     Route: 042
     Dates: start: 20230430, end: 20230517
  6. AMMONIUM GLYCYRRHIZATE\CYSTEINE [Concomitant]
     Active Substance: AMMONIUM GLYCYRRHIZATE\CYSTEINE
     Indication: Prophylaxis
     Dosage: 100 MILLILITER, QD
     Route: 042
     Dates: start: 20230430, end: 20230519
  7. POTASSIUM CHLORIDE [Concomitant]
     Active Substance: POTASSIUM CHLORIDE
     Indication: Mineral supplementation
     Dosage: 0.5 GRAM, BID
     Route: 048
     Dates: start: 20230510, end: 20230519
  8. POTASSIUM CHLORIDE [Concomitant]
     Active Substance: POTASSIUM CHLORIDE
     Dosage: 1 GRAM, TID
     Route: 048
     Dates: start: 20230623
  9. FAMOTIDINE [Concomitant]
     Active Substance: FAMOTIDINE
     Indication: Prophylaxis
     Dosage: 20 MILLIGRAM, BID
     Route: 042
     Dates: start: 20230510, end: 20230518
  10. PREDNISOLONE [Concomitant]
     Active Substance: PREDNISOLONE
     Indication: Lymphoma
     Dosage: 60 MILLIGRAM, QD
     Route: 042
     Dates: start: 20230512, end: 20230516
  11. MAGNESIUM ISOGLYCYRRHIZINATE [Concomitant]
     Active Substance: MAGNESIUM ISOGLYCYRRHIZINATE
     Indication: Prophylaxis
     Dosage: 40 MILLILITER, QD
     Route: 042
     Dates: start: 20230429, end: 20230515
  12. INSULIN PORK\INSULIN PURIFIED PORK [Concomitant]
     Active Substance: INSULIN PORK\INSULIN PURIFIED PORK
     Indication: Diabetes mellitus
     Dosage: 12 INTERNATIONAL UNIT
     Route: 058
     Dates: start: 20230511, end: 20230511
  13. INSULIN PORK\INSULIN PURIFIED PORK [Concomitant]
     Active Substance: INSULIN PORK\INSULIN PURIFIED PORK
     Dosage: 81 INTERNATIONAL UNIT
     Route: 058
     Dates: start: 20230511, end: 20230511
  14. INSULIN PORK\INSULIN PURIFIED PORK [Concomitant]
     Active Substance: INSULIN PORK\INSULIN PURIFIED PORK
     Dosage: 41 INTERNATIONAL UNIT
     Route: 058
     Dates: start: 20230511, end: 20230511
  15. INSULIN PORK\INSULIN PURIFIED PORK [Concomitant]
     Active Substance: INSULIN PORK\INSULIN PURIFIED PORK
     Dosage: 121 INTERNATIONAL UNIT
     Route: 058
     Dates: start: 20230512, end: 20230512
  16. INSULIN PORK\INSULIN PURIFIED PORK [Concomitant]
     Active Substance: INSULIN PORK\INSULIN PURIFIED PORK
     Dosage: 141 INTERNATIONAL UNIT
     Route: 058
     Dates: start: 20230512, end: 20230512
  17. INSULIN PORK\INSULIN PURIFIED PORK [Concomitant]
     Active Substance: INSULIN PORK\INSULIN PURIFIED PORK
     Dosage: 40 INTERNATIONAL UNIT
     Route: 058
     Dates: start: 20230512, end: 20230512
  18. INSULIN PORK\INSULIN PURIFIED PORK [Concomitant]
     Active Substance: INSULIN PORK\INSULIN PURIFIED PORK
     Dosage: 81 INTERNATIONAL UNIT
     Route: 058
     Dates: start: 20230513, end: 20230513
  19. INSULIN PORK\INSULIN PURIFIED PORK [Concomitant]
     Active Substance: INSULIN PORK\INSULIN PURIFIED PORK
     Dosage: 121 INTERNATIONAL UNIT
     Route: 058
     Dates: start: 20230513, end: 20230513
  20. INSULIN PORK\INSULIN PURIFIED PORK [Concomitant]
     Active Substance: INSULIN PORK\INSULIN PURIFIED PORK
     Dosage: 12 INTERNATIONAL UNIT
     Route: 058
     Dates: start: 20230513, end: 20230513
  21. INSULIN PORK\INSULIN PURIFIED PORK [Concomitant]
     Active Substance: INSULIN PORK\INSULIN PURIFIED PORK
     Dosage: 8 INTERNATIONAL UNIT
     Route: 058
     Dates: start: 20230513, end: 20230513
  22. INSULIN PORK\INSULIN PURIFIED PORK [Concomitant]
     Active Substance: INSULIN PORK\INSULIN PURIFIED PORK
     Dosage: 14 INTERNATIONAL UNIT
     Route: 058
     Dates: start: 20230512, end: 20230512
  23. INSULIN PORK\INSULIN PURIFIED PORK [Concomitant]
     Active Substance: INSULIN PORK\INSULIN PURIFIED PORK
     Dosage: 12 INTERNATIONAL UNIT
     Route: 058
     Dates: start: 20230512, end: 20230512
  24. INSULIN PORK\INSULIN PURIFIED PORK [Concomitant]
     Active Substance: INSULIN PORK\INSULIN PURIFIED PORK
     Dosage: 4 INTERNATIONAL UNIT
     Route: 058
     Dates: start: 20230512, end: 20230512
  25. INSULIN PORK\INSULIN PURIFIED PORK [Concomitant]
     Active Substance: INSULIN PORK\INSULIN PURIFIED PORK
     Dosage: 8 INTERNATIONAL UNIT
     Route: 058
     Dates: start: 20230511, end: 20230511
  26. INSULIN PORK\INSULIN PURIFIED PORK [Concomitant]
     Active Substance: INSULIN PORK\INSULIN PURIFIED PORK
     Dosage: 12 INTERNATIONAL UNIT, QD
     Route: 058
     Dates: start: 20230612
  27. INSULIN PORK\INSULIN PURIFIED PORK [Concomitant]
     Active Substance: INSULIN PORK\INSULIN PURIFIED PORK
     Dosage: UNK
  28. DESLORATADINE [Concomitant]
     Active Substance: DESLORATADINE
     Indication: Allergy prophylaxis
     Dosage: 5 MILLIGRAM
     Route: 048
     Dates: start: 20230511, end: 20230511
  29. DESLORATADINE [Concomitant]
     Active Substance: DESLORATADINE
     Dosage: 5 MILLIGRAM
     Route: 048
     Dates: start: 20230512, end: 20230512
  30. PROMETHAZINE HYDROCHLORIDE [Concomitant]
     Active Substance: PROMETHAZINE HYDROCHLORIDE
     Indication: Allergy prophylaxis
     Dosage: 12.5 MILLIGRAM
     Route: 030
     Dates: start: 20230511, end: 20230511
  31. DEXAMETHASONE SODIUM PHOSPHATE [Concomitant]
     Active Substance: DEXAMETHASONE PHOSPHATE\DEXAMETHASONE SODIUM PHOSPHATE
     Indication: Allergy prophylaxis
     Dosage: 5 MILLIGRAM
     Route: 042
     Dates: start: 20230512, end: 20230512
  32. CEFDINIR [Concomitant]
     Active Substance: CEFDINIR
     Indication: Infection prophylaxis
     Dosage: 0.10 GRAM, Q8HR
     Route: 048
     Dates: start: 20230808
  33. METHYLPREDNISOLONE SODIUM SUCCINATE [Concomitant]
     Active Substance: METHYLPREDNISOLONE SODIUM SUCCINATE
     Dosage: 40 MILLIGRAM, QD
     Route: 042

REACTIONS (14)
  - Pneumonia [Recovering/Resolving]
  - Pulmonary fibrosis [Not Recovered/Not Resolved]
  - Hypokalaemia [Not Recovered/Not Resolved]
  - Cerebral infarction [Not Recovered/Not Resolved]
  - Anaemia [Not Recovered/Not Resolved]
  - Lymphocyte count decreased [Not Recovered/Not Resolved]
  - White blood cell count decreased [Recovered/Resolved]
  - Herpes zoster [Recovered/Resolved]
  - Platelet count decreased [Recovered/Resolved]
  - Haematuria [Recovered/Resolved]
  - Pulmonary mass [Not Recovered/Not Resolved]
  - Protein urine present [Not Recovered/Not Resolved]
  - COVID-19 [Not Recovered/Not Resolved]
  - Off label use [Not Recovered/Not Resolved]

NARRATIVE: CASE EVENT DATE: 20230510
